FAERS Safety Report 10102419 (Version 3)
Quarter: 2014Q2

REPORT INFORMATION
  Report Type: Report from Study
  Country: DE (occurrence: DE)
  Receive Date: 20140424
  Receipt Date: 20140611
  Transmission Date: 20141212
  Serious: Yes (Hospitalization)
  Sender: FDA-Public Use
  Company Number: PHHO2014DE005603

PATIENT
  Sex: 0

DRUGS (6)
  1. BLINDED NO TREATMENT RECEIVED [Suspect]
     Dosage: DOUBLE BLINDED
     Route: 042
     Dates: start: 20140404, end: 20140406
  2. BLINDED PLACEBO [Suspect]
     Dosage: DOUBLE BLINDED
     Route: 042
     Dates: start: 20140404, end: 20140406
  3. BLINDED RLX030 [Suspect]
     Dosage: DOUBLE BLINDED
     Route: 042
     Dates: start: 20140404, end: 20140406
  4. TORASEMIDE [Suspect]
  5. FUROSEMIDE [Suspect]
     Indication: PROPHYLAXIS
     Dosage: 120 MG, UNK
     Route: 042
     Dates: start: 20140404
  6. XIPAMIDE [Suspect]

REACTIONS (1)
  - Renal failure chronic [Not Recovered/Not Resolved]
